FAERS Safety Report 25862692 (Version 1)
Quarter: 2025Q3

REPORT INFORMATION
  Report Type: Spontaneous
  Country: US (occurrence: US)
  Receive Date: 20250930
  Receipt Date: 20250930
  Transmission Date: 20251021
  Serious: No
  Sender: STRIDES
  Company Number: US-STRIDES ARCOLAB LIMITED-2025SP009765

PATIENT
  Age: 30 Year
  Sex: Female

DRUGS (14)
  1. PREDNISONE [Suspect]
     Active Substance: PREDNISONE
     Indication: Vasculitis
     Route: 065
  2. PREDNISONE [Suspect]
     Active Substance: PREDNISONE
     Indication: Skin disorder
  3. PREDNISONE [Suspect]
     Active Substance: PREDNISONE
     Indication: Thrombosis
  4. PREDNISONE [Suspect]
     Active Substance: PREDNISONE
     Indication: Factor V Leiden mutation
  5. PREDNISONE [Suspect]
     Active Substance: PREDNISONE
     Indication: Anti-prothrombin antibody positive
  6. APIXABAN [Concomitant]
     Active Substance: APIXABAN
     Indication: Factor V Leiden mutation
     Route: 065
  7. APIXABAN [Concomitant]
     Active Substance: APIXABAN
     Indication: Thrombosis
  8. APIXABAN [Concomitant]
     Active Substance: APIXABAN
     Indication: Skin disorder
  9. APIXABAN [Concomitant]
     Active Substance: APIXABAN
     Indication: Anti-prothrombin antibody positive
  10. RITUXIMAB-PVVR [Concomitant]
     Active Substance: RITUXIMAB-PVVR
     Indication: Factor V Leiden mutation
     Route: 065
  11. RITUXIMAB-PVVR [Concomitant]
     Active Substance: RITUXIMAB-PVVR
     Indication: Skin disorder
  12. RITUXIMAB-PVVR [Concomitant]
     Active Substance: RITUXIMAB-PVVR
     Indication: Thrombosis
  13. RITUXIMAB-PVVR [Concomitant]
     Active Substance: RITUXIMAB-PVVR
     Indication: Anti-prothrombin antibody positive
  14. AZATHIOPRINE [Concomitant]
     Active Substance: AZATHIOPRINE
     Indication: Inflammatory bowel disease
     Route: 065

REACTIONS (1)
  - Off label use [Unknown]
